FAERS Safety Report 6767906-X (Version None)
Quarter: 2010Q2

REPORT INFORMATION
  Report Type: 
  Country: None (occurrence: None)
  Receive Date: 20100614
  Receipt Date: 20100607
  Transmission Date: 20101027
  Serious: Yes (Disabling)
  Sender: FDA-Public Use
  Company Number: CA-ASTRAZENECA-2010SE26813

PATIENT
  Age: 58 Year
  Sex: Female
  Weight: 81.6 kg

DRUGS (6)
  1. CRESTOR [Suspect]
     Route: 048
  2. ALTACE [Concomitant]
  3. NOVASEN [Concomitant]
  4. PAXIL [Concomitant]
  5. TEMAZEPAM [Concomitant]
  6. THYROID HORMONES [Concomitant]

REACTIONS (5)
  - DIZZINESS [None]
  - GAIT DISTURBANCE [None]
  - GOUT [None]
  - PAIN IN EXTREMITY [None]
  - WALKING AID USER [None]
